FAERS Safety Report 17165436 (Version 1)
Quarter: 2019Q4

REPORT INFORMATION
  Report Type: Spontaneous
  Country: FR (occurrence: FR)
  Receive Date: 20191217
  Receipt Date: 20191217
  Transmission Date: 20200122
  Serious: Yes (Hospitalization)
  Sender: FDA-Public Use
  Company Number: FR-ACELRX PHARMACEUTICALS, INC-ACEL20192445

PATIENT
  Age: 53 Year
  Sex: Female

DRUGS (3)
  1. BACTRIM [Suspect]
     Active Substance: SULFAMETHOXAZOLE\TRIMETHOPRIM
     Indication: URINARY TRACT INFECTION
     Dosage: 2 DF
     Route: 048
     Dates: start: 20191115, end: 20191116
  2. SUFENTANIL [Suspect]
     Active Substance: SUFENTANIL
     Indication: SURGERY
     Dosage: 1 DF
     Route: 048
     Dates: start: 20191118, end: 20191118
  3. AMOXICILLINE [Suspect]
     Active Substance: AMOXICILLIN
     Indication: URINARY TRACT INFECTION
     Dosage: 3 G
     Route: 048
     Dates: start: 20191117, end: 20191117

REACTIONS (1)
  - Stevens-Johnson syndrome [Not Recovered/Not Resolved]

NARRATIVE: CASE EVENT DATE: 20191118
